FAERS Safety Report 6339372-X (Version None)
Quarter: 2009Q3

REPORT INFORMATION
  Report Type: 
  Country: None (occurrence: None)
  Receive Date: 20090903
  Receipt Date: 20090825
  Transmission Date: 20100115
  Serious: Yes (Hospitalization)
  Sender: FDA-Public Use
  Company Number: KR-ELI_LILLY_AND_COMPANY-KR200908003594

PATIENT
  Age: 70 Year
  Sex: Female

DRUGS (5)
  1. HUMALOG MIX 75/25 [Suspect]
     Indication: TYPE 2 DIABETES MELLITUS
     Dosage: 18 IU, EACH MORNING
     Route: 058
  2. HUMALOG MIX 75/25 [Suspect]
     Dosage: 6 IU, EACH EVENING
     Route: 058
  3. HUMALOG MIX 75/25 [Suspect]
     Dosage: 14 IU, EACH MORNING
     Dates: start: 20090801
  4. HUMALOG MIX 75/25 [Suspect]
     Dosage: 4 IU, EACH EVENING
     Dates: start: 20090801
  5. CHEMOTHERAPEUTICS NOS [Concomitant]
     Indication: PANCREATIC CARCINOMA

REACTIONS (3)
  - BLOOD GLUCOSE DECREASED [None]
  - DUODENITIS [None]
  - SYNCOPE [None]
